FAERS Safety Report 5627887-9 (Version None)
Quarter: 2008Q1

REPORT INFORMATION
  Report Type: 
  Country: None (occurrence: None)
  Receive Date: 20080215
  Receipt Date: 20080208
  Transmission Date: 20080703
  Serious: Yes (Hospitalization)
  Sender: FDA-Public Use
  Company Number: AU-MERCK-0802AUS00065

PATIENT
  Age: 54 Year
  Sex: Female

DRUGS (2)
  1. FOSAMAX [Suspect]
     Route: 048
     Dates: start: 20050101, end: 20071001
  2. [THERAPY UNSPECIFIED] [Concomitant]
     Indication: BLOOD PRESSURE ABNORMAL
     Route: 065

REACTIONS (4)
  - BLOOD PRESSURE INCREASED [None]
  - MYOCARDIAL INFARCTION [None]
  - PALPITATIONS [None]
  - STRESS CARDIOMYOPATHY [None]
